FAERS Safety Report 4297750-7 (Version None)
Quarter: 2004Q1

REPORT INFORMATION
  Report Type: 
  Country: None (occurrence: None)
  Receive Date: 20040217
  Receipt Date: 20040217
  Transmission Date: 20041129
  Serious: Yes (Life-Threatening)
  Sender: FDA-Public Use
  Company Number: None

PATIENT
  Age: 41 Year
  Sex: Female
  Weight: 117 kg

DRUGS (5)
  1. CETACAINE SPRAY [Suspect]
     Indication: ANAESTHESIA
     Dosage: TOPICAL SPRAY
     Route: 061
     Dates: start: 20031213
  2. CETACAINE SPRAY [Suspect]
     Indication: ENDOSCOPY
     Dosage: TOPICAL SPRAY
     Route: 061
     Dates: start: 20031213
  3. ISORDIL [Concomitant]
  4. PROTONIX [Concomitant]
  5. MULTI-VITAMINS [Concomitant]

REACTIONS (1)
  - ACQUIRED METHAEMOGLOBINAEMIA [None]
